FAERS Safety Report 5714326-2 (Version None)
Quarter: 2008Q2

REPORT INFORMATION
  Report Type: 
  Country: None (occurrence: None)
  Receive Date: 20080422
  Receipt Date: 20080422
  Transmission Date: 20081010
  Serious: No
  Sender: FDA-Public Use
  Company Number: None

PATIENT
  Sex: Female
  Weight: 57 kg

DRUGS (1)
  1. MURAD (CLARIFYING CLEANSER, EXFOLIATING ACNE GEL, SKIN PERFECTING LOTI [Suspect]
     Indication: ACNE
     Dosage: VARIED VARIED TOPICAL
     Route: 061
     Dates: start: 20080201, end: 20080301

REACTIONS (4)
  - CONDITION AGGRAVATED [None]
  - SKIN BURNING SENSATION [None]
  - SKIN DISCOLOURATION [None]
  - SKIN EXFOLIATION [None]
